FAERS Safety Report 4375843-3 (Version None)
Quarter: 2004Q2

REPORT INFORMATION
  Report Type: 
  Country: None (occurrence: None)
  Receive Date: 20040609
  Receipt Date: 20040609
  Transmission Date: 20050107
  Serious: Yes (Hospitalization)
  Sender: FDA-Public Use
  Company Number: None

PATIENT
  Age: 82 Year
  Sex: Female
  Weight: 82 kg

DRUGS (5)
  1. ASPIRIN [Suspect]
     Indication: PROPHYLAXIS
     Dosage: 325 MG QD
  2. NAPROXEN [Suspect]
     Indication: ARTHRITIS
     Dosage: 200 MG Q 6-8 H
  3. CLOPIDOGREL BISULFATE [Concomitant]
  4. ATENOLOL [Concomitant]
  5. PANTOPRAZOLE [Concomitant]

REACTIONS (2)
  - DIVERTICULUM [None]
  - GASTROINTESTINAL ULCER HAEMORRHAGE [None]
